FAERS Safety Report 23629253 (Version 2)
Quarter: 2024Q1

REPORT INFORMATION
  Report Type: Spontaneous
  Country: JP (occurrence: JP)
  Receive Date: 20240313
  Receipt Date: 20240329
  Transmission Date: 20240410
  Serious: Yes (Death, Other)
  Sender: FDA-Public Use
  Company Number: JP-TAKEDA-2024TJP003860

PATIENT
  Age: 5 Decade
  Sex: Female

DRUGS (2)
  1. ALUNBRIG [Suspect]
     Active Substance: BRIGATINIB
     Indication: Lung neoplasm malignant
     Dosage: UNK
     Route: 048
  2. ALUNBRIG [Suspect]
     Active Substance: BRIGATINIB
     Dosage: 180 MILLIGRAM, QD
     Route: 048
     Dates: start: 20231107, end: 20240101

REACTIONS (4)
  - Death [Fatal]
  - Blood cholesterol increased [Unknown]
  - Blood creatine phosphokinase increased [Unknown]
  - Therapeutic product effect incomplete [Unknown]
